FAERS Safety Report 10704131 (Version 4)
Quarter: 2015Q1

REPORT INFORMATION
  Report Type: Spontaneous
  Country: US (occurrence: US)
  Receive Date: 20150112
  Receipt Date: 20150312
  Transmission Date: 20150721
  Serious: Yes (Disabling)
  Sender: FDA-Public Use
  Company Number: US-009507513-1110USA03462

PATIENT
  Sex: Male
  Weight: 79.82 kg

DRUGS (2)
  1. PROPECIA [Suspect]
     Active Substance: FINASTERIDE
     Dosage: UNK
     Route: 048
     Dates: end: 2008
  2. PROPECIA [Suspect]
     Active Substance: FINASTERIDE
     Indication: ANDROGENETIC ALOPECIA
     Dosage: 1 MG, QD
     Route: 048
     Dates: start: 20060316, end: 200709

REACTIONS (29)
  - Asthma [Not Recovered/Not Resolved]
  - Back pain [Unknown]
  - Cognitive disorder [Not Recovered/Not Resolved]
  - Erectile dysfunction [Not Recovered/Not Resolved]
  - Ejaculation disorder [Unknown]
  - Blood pressure increased [Unknown]
  - Adverse event [Unknown]
  - Abdominal pain upper [Unknown]
  - Hepatic function abnormal [Unknown]
  - Patellofemoral pain syndrome [Unknown]
  - Anxiety [Not Recovered/Not Resolved]
  - Chronic fatigue syndrome [Not Recovered/Not Resolved]
  - Adrenal disorder [Unknown]
  - Penis disorder [Unknown]
  - Hiatus hernia [Unknown]
  - Depression [Not Recovered/Not Resolved]
  - Muscle strain [Unknown]
  - Endocrine disorder [Unknown]
  - Gastrooesophageal reflux disease [Unknown]
  - Ejaculation failure [Unknown]
  - Hypertriglyceridaemia [Unknown]
  - Cough [Unknown]
  - Testicular disorder [Unknown]
  - Upper respiratory tract infection [Not Recovered/Not Resolved]
  - Perineal pain [Unknown]
  - Androgens abnormal [Unknown]
  - Sexual dysfunction [Unknown]
  - Libido decreased [Recovering/Resolving]
  - Pollakiuria [Unknown]

NARRATIVE: CASE EVENT DATE: 2006
